FAERS Safety Report 9442460 (Version 1)
Quarter: 2013Q3

REPORT INFORMATION
  Report Type: Spontaneous
  Country: US (occurrence: US)
  Receive Date: 20130806
  Receipt Date: 20130806
  Transmission Date: 20140515
  Serious: Yes (Other)
  Sender: FDA-Public Use
  Company Number: US-ROCHE-1256093

PATIENT
  Age: 78 Year
  Sex: Female

DRUGS (7)
  1. LUCENTIS [Suspect]
     Indication: AGE-RELATED MACULAR DEGENERATION
     Route: 050
     Dates: start: 20130619
  2. LEVOTHYROXINE [Concomitant]
     Route: 065
  3. METOPROLOL TARTRATE [Concomitant]
     Indication: PALPITATIONS
     Route: 065
  4. ENABLEX [Concomitant]
     Indication: MICTURITION URGENCY
     Route: 065
  5. IRBESARTAN [Concomitant]
     Indication: BLOOD PRESSURE
     Route: 065
  6. ATORVASTATIN [Concomitant]
     Indication: BLOOD CHOLESTEROL INCREASED
     Route: 065
  7. MACRODANTIN [Concomitant]
     Indication: INFECTION
     Route: 065

REACTIONS (3)
  - Vitreous floaters [Recovering/Resolving]
  - Visual acuity reduced [Recovering/Resolving]
  - Vitritis [Recovering/Resolving]
